FAERS Safety Report 19824536 (Version 1)
Quarter: 2021Q3

REPORT INFORMATION
  Report Type: Spontaneous
  Country: CN (occurrence: CN)
  Receive Date: 20210914
  Receipt Date: 20210914
  Transmission Date: 20211014
  Serious: Yes (Death, Other)
  Sender: FDA-Public Use
  Company Number: CN-ASTELLAS-2021US034009

PATIENT
  Age: 79 Year
  Sex: Female
  Weight: 52 kg

DRUGS (4)
  1. MYCAMINE [Suspect]
     Active Substance: MICAFUNGIN SODIUM
     Indication: PERITONITIS
     Route: 041
     Dates: start: 20210820, end: 20210906
  2. TIGECYCLINE. [Suspect]
     Active Substance: TIGECYCLINE
     Indication: PERITONITIS
     Route: 041
     Dates: start: 20210820, end: 20210906
  3. SODIUM CHLORIDE. [Concomitant]
     Active Substance: SODIUM CHLORIDE
     Indication: ADVERSE REACTION
     Route: 041
     Dates: start: 20210820, end: 20210906
  4. SODIUM CHLORIDE. [Concomitant]
     Active Substance: SODIUM CHLORIDE
     Route: 041
     Dates: start: 20210820, end: 20210906

REACTIONS (2)
  - Thrombocytopenia [Not Recovered/Not Resolved]
  - Septic shock [Fatal]

NARRATIVE: CASE EVENT DATE: 20210827
